FAERS Safety Report 16268604 (Version 3)
Quarter: 2019Q2

REPORT INFORMATION
  Report Type: Spontaneous
  Country: BR (occurrence: BR)
  Receive Date: 20190503
  Receipt Date: 20190627
  Transmission Date: 20190711
  Serious: Yes (Other)
  Sender: FDA-Public Use
  Company Number: BR-SA-2019SA117122

PATIENT
  Age: 65 Year
  Sex: Male
  Weight: 70 kg

DRUGS (3)
  1. FUROSEMIDE [FUROSEMIDE SODIUM] [Concomitant]
     Dosage: UNK
     Route: 048
     Dates: start: 201901
  2. LANTUS SOLOSTAR [Suspect]
     Active Substance: INSULIN GLARGINE
     Indication: TYPE 2 DIABETES MELLITUS
     Dosage: 50 IU, QD
     Route: 058
     Dates: start: 201901
  3. LOSARTAN. [Concomitant]
     Active Substance: LOSARTAN
     Dosage: 1 TABLET IN THE MORNING
     Route: 048
     Dates: start: 2018

REACTIONS (9)
  - Application site reaction [Recovered/Resolved]
  - Syncope [Recovered/Resolved]
  - Hyperhidrosis [Recovered/Resolved]
  - Hypersensitivity [Recovered/Resolved]
  - Blood glucose decreased [Recovered/Resolved]
  - Injection site mass [Recovered/Resolved]
  - Chills [Recovered/Resolved]
  - Multiple use of single-use product [Unknown]
  - Product storage error [Unknown]

NARRATIVE: CASE EVENT DATE: 201903
